FAERS Safety Report 9710130 (Version 2)
Quarter: 2014Q1

REPORT INFORMATION
  Report Type: Report from Study
  Country: CA (occurrence: CA)
  Receive Date: 20131126
  Receipt Date: 20140108
  Transmission Date: 20141002
  Serious: Yes (Other)
  Sender: FDA-Public Use
  Company Number: PHHY2013CA135283

PATIENT
  Sex: Female

DRUGS (6)
  1. GILENYA [Suspect]
     Indication: MULTIPLE SCLEROSIS
     Dosage: 0.5 MG, QD
     Route: 048
     Dates: start: 201310
  2. OXYBUTYNIN CHLORIDE [Concomitant]
  3. CLINDAMYCIN [Concomitant]
  4. IBUPROFEN [Concomitant]
  5. VIT D [Concomitant]
  6. SALBUTAMOL [Concomitant]

REACTIONS (1)
  - Eye haemorrhage [Not Recovered/Not Resolved]
